FAERS Safety Report 4985478-7 (Version None)
Quarter: 2006Q2

REPORT INFORMATION
  Report Type: 
  Country: None (occurrence: None)
  Receive Date: 20060428
  Receipt Date: 20050406
  Transmission Date: 20061013
  Serious: No
  Sender: FDA-Public Use
  Company Number: US-GLAXOSMITHKLINE-A0553224A

PATIENT
  Age: 1 Month

DRUGS (1)
  1. FLOVENT [Suspect]
     Indication: RESPIRATION ABNORMAL
     Route: 055

REACTIONS (1)
  - NONSPECIFIC REACTION [None]
